FAERS Safety Report 8579777 (Version 6)
Quarter: 2012Q4

REPORT INFORMATION
  Report Type: 
  Country: US (occurrence: US)
  Receive Date: 20120525
  Receipt Date: 20120828
  Transmission Date: 20130627
  Serious: Yes (Other)
  Sender: FDA-Public Use
  Company Number: US-JNJFOC-20120512659

PATIENT
  Age: 63 None
  Sex: Female
  Weight: 58.97 kg

DRUGS (6)
  1. REMICADE [Suspect]
     Indication: PSORIATIC ARTHROPATHY
     Route: 042
     Dates: start: 20120405, end: 20120419
  2. LEFLUNOMIDE [Concomitant]
     Indication: PSORIATIC ARTHROPATHY
     Route: 065
  3. METHOTREXATE [Concomitant]
     Indication: PSORIASIS
     Route: 065
  4. METHOTREXATE [Concomitant]
     Indication: PSORIASIS
     Route: 065
  5. METHOTREXATE [Concomitant]
     Indication: PSORIATIC ARTHROPATHY
     Route: 065
  6. METHOTREXATE [Concomitant]
     Indication: PSORIATIC ARTHROPATHY
     Route: 065

REACTIONS (12)
  - Hypertension [Recovered/Resolved]
  - Adverse event [Unknown]
  - Paraesthesia [Unknown]
  - Psoriatic arthropathy [Unknown]
  - Chest pain [Unknown]
  - Musculoskeletal disorder [Unknown]
  - Loss of consciousness [Unknown]
  - Drug hypersensitivity [Recovered/Resolved]
  - Dizziness [Recovered/Resolved]
  - Nausea [Recovered/Resolved]
  - Headache [Unknown]
  - Vomiting [Unknown]
